FAERS Safety Report 21359153 (Version 2)
Quarter: 2022Q3

REPORT INFORMATION
  Report Type: Spontaneous
  Country: US (occurrence: US)
  Receive Date: 20220921
  Receipt Date: 20220922
  Transmission Date: 20221027
  Serious: Yes (Other)
  Sender: FDA-Public Use
  Company Number: US-PFIZER INC-202201166737

PATIENT
  Age: 76 Year
  Sex: Female
  Weight: 64.41 kg

DRUGS (1)
  1. PAXLOVID [Suspect]
     Active Substance: NIRMATRELVIR\RITONAVIR
     Indication: COVID-19 treatment
     Dosage: [PF-07321332 300 MG]/[RITONAVIR 100 MG]; 2X/DAY
     Dates: start: 20220913

REACTIONS (7)
  - Loss of consciousness [Unknown]
  - Shock [Unknown]
  - Hypotension [Unknown]
  - Hyperhidrosis [Unknown]
  - Feeling cold [Unknown]
  - Eye movement disorder [Unknown]
  - Hypertension [Unknown]

NARRATIVE: CASE EVENT DATE: 20220901
